FAERS Safety Report 12256980 (Version 1)
Quarter: 2016Q2

REPORT INFORMATION
  Report Type: Spontaneous
  Country: AU (occurrence: AU)
  Receive Date: 20160412
  Receipt Date: 20160412
  Transmission Date: 20160815
  Serious: Yes (Hospitalization)
  Sender: FDA-Public Use
  Company Number: AU-SUNOVION-2016DSP000180

PATIENT
  Sex: Male
  Weight: 121 kg

DRUGS (2)
  1. AMISULPRIDE SANDOZ [Concomitant]
  2. LATUDA [Suspect]
     Active Substance: LURASIDONE HYDROCHLORIDE
     Dosage: 80 MG, QD
     Route: 048
     Dates: start: 20160114, end: 20160117

REACTIONS (1)
  - Joint stiffness [Recovered/Resolved]
